FAERS Safety Report 8084293 (Version 2)
Quarter: 2013Q1

REPORT INFORMATION
  Report Type: Spontaneous
  Country: US (occurrence: US)
  Receive Date: 20110810
  Receipt Date: 20130215
  Transmission Date: 20140127
  Serious: Yes (Hospitalization)
  Sender: FDA-Public Use
  Company Number: US-GLAXOSMITHKLINE-A0903533A

PATIENT
  Age: 62 Year
  Sex: Male

DRUGS (1)
  1. AVANDIA [Suspect]
     Indication: DIABETES MELLITUS
     Dosage: 8MG PER DAY
     Route: 048
     Dates: start: 19991001, end: 20070612

REACTIONS (6)
  - Myocardial infarction [Not Recovered/Not Resolved]
  - Loss of consciousness [Unknown]
  - Head injury [Unknown]
  - Cardiac failure congestive [Unknown]
  - Cardiac operation [Unknown]
  - Pleural effusion [Unknown]
